FAERS Safety Report 4590859-X (Version None)
Quarter: 2005Q1

REPORT INFORMATION
  Report Type: 
  Country: None (occurrence: None)
  Receive Date: 20050222
  Receipt Date: 20050222
  Transmission Date: 20050727
  Serious: Yes (Other)
  Sender: FDA-Public Use
  Company Number: None

PATIENT
  Sex: Male
  Weight: 107.2 kg

DRUGS (10)
  1. HYDROXYUREA [Suspect]
     Dosage: 500MG PO  BID
     Route: 048
     Dates: start: 20050107
  2. GLEEVEC [Suspect]
     Dosage: 500 MG PO BID
     Route: 048
     Dates: start: 20050107
  3. FOLIC ACID [Concomitant]
  4. TOPROL-XL [Concomitant]
  5. PROTONIX [Concomitant]
  6. LIPITOR [Concomitant]
  7. VERAPAMIL [Concomitant]
  8. ALTRACE [Concomitant]
  9. XANAX [Concomitant]
  10. DILANTIN [Concomitant]

REACTIONS (1)
  - DEEP VEIN THROMBOSIS [None]
